FAERS Safety Report 9713533 (Version 1)
Quarter: 2013Q4

REPORT INFORMATION
  Report Type: Spontaneous
  Country: US (occurrence: None)
  Receive Date: 20131125
  Receipt Date: 20131125
  Transmission Date: 20140711
  Serious: Yes (Hospitalization)
  Sender: FDA-Public Use
  Company Number: None

PATIENT
  Age: 75 Year
  Sex: Female
  Weight: 86.18 kg

DRUGS (3)
  1. BEVACIZUMAB [Suspect]
  2. CARBOPLATIN (241240) [Suspect]
  3. PLACITAXEL (MANUFACTURER UNKNOWN) (PACLITAXEL) (PACLITAXEL) [Suspect]

REACTIONS (5)
  - Body temperature increased [None]
  - Diarrhoea [None]
  - Neutrophil count decreased [None]
  - White blood cell count decreased [None]
  - Anaemia [None]
